FAERS Safety Report 6936229-8 (Version None)
Quarter: 2010Q3

REPORT INFORMATION
  Report Type: 
  Country: None (occurrence: None)
  Receive Date: 20100823
  Receipt Date: 20100811
  Transmission Date: 20110219
  Serious: Yes (Other)
  Sender: FDA-Public Use
  Company Number: GB-PFIZER INC-2010101374

PATIENT
  Age: 61 Year
  Sex: Male
  Weight: 81.1 kg

DRUGS (8)
  1. SILDENAFIL CITRATE [Suspect]
     Indication: ERECTILE DYSFUNCTION
     Dosage: 50 MG, 1X/DAY
     Route: 048
     Dates: start: 20100313, end: 20100313
  2. BENDROFLUAZIDE [Concomitant]
     Indication: HYPERTENSION
     Dosage: 2.5 MG, UNK
     Route: 048
  3. BETNOVATE [Concomitant]
     Indication: RASH
     Dosage: UNK
  4. DIPROBASE CREAM [Concomitant]
     Indication: RASH
     Dosage: UNK
  5. FYBOGEL [Concomitant]
     Dosage: UNK
     Route: 048
  6. LATANOPROST [Concomitant]
     Indication: GLAUCOMA
     Dosage: UNK
  7. LISINOPRIL [Concomitant]
     Indication: HYPERTENSION
     Dosage: 20 MG, UNK
     Route: 048
  8. MOMETASONE [Concomitant]
     Indication: RASH
     Dosage: UNK

REACTIONS (3)
  - BALANITIS [None]
  - DRUG INEFFECTIVE [None]
  - HAEMATOMA [None]
